FAERS Safety Report 8491046-5 (Version None)
Quarter: 2012Q3

REPORT INFORMATION
  Report Type: 
  Country: None (occurrence: None)
  Receive Date: 20120706
  Receipt Date: 20120627
  Transmission Date: 20120928
  Serious: Yes (Hospitalization)
  Sender: FDA-Public Use
  Company Number: US-BAYER-2012-024552

PATIENT
  Age: 39 Year
  Sex: Female
  Weight: 89.342 kg

DRUGS (14)
  1. LEXAPRO [Concomitant]
  2. FLUOXETINE [Concomitant]
     Indication: DEPRESSION
     Dosage: 20 MG, UNK
     Route: 048
     Dates: start: 20071001, end: 20080301
  3. TERCONAZOLE [Concomitant]
     Dosage: UNK
     Dates: start: 20071219
  4. YASMIN [Suspect]
     Indication: CONTRACEPTION
     Dosage: UNK
     Route: 048
     Dates: start: 20071201, end: 20080201
  5. CELEXA [Concomitant]
  6. PROZAC [Concomitant]
     Indication: ANXIETY
  7. CEPHALEXIN [Concomitant]
     Dosage: 500 MG, UNK
     Route: 048
     Dates: start: 20080201
  8. NOVOLOG [Concomitant]
     Indication: DIABETES MELLITUS
     Dosage: UNK
     Route: 058
     Dates: start: 20071101
  9. NOVOLOG [Concomitant]
     Dosage: UNK
     Dates: start: 20080101
  10. LANTUS [Concomitant]
     Indication: DIABETES MELLITUS
     Dosage: 33 MG,100/ML, UNK
     Route: 058
     Dates: start: 20071201
  11. ZOLOFT [Concomitant]
  12. LISINOPRIL [Concomitant]
     Indication: HYPERTENSION
     Dosage: 10 MG, UNK
     Route: 048
     Dates: start: 20071101, end: 20071201
  13. METRONIDAZOLE [Concomitant]
     Dosage: UNK
     Route: 067
     Dates: start: 20071201
  14. FLUCONAZOLE [Concomitant]
     Dosage: 150 MG, UNK
     Route: 048
     Dates: start: 20080121

REACTIONS (6)
  - EMOTIONAL DISTRESS [None]
  - OEDEMA PERIPHERAL [None]
  - INJURY [None]
  - DEEP VEIN THROMBOSIS [None]
  - GAIT DISTURBANCE [None]
  - PAIN IN EXTREMITY [None]
